FAERS Safety Report 9399353 (Version 2)
Quarter: 2013Q3

REPORT INFORMATION
  Report Type: Spontaneous
  Country: US (occurrence: None)
  Receive Date: 20130709
  Receipt Date: 20130910
  Transmission Date: 20140515
  Serious: Yes (Hospitalization)
  Sender: FDA-Public Use
  Company Number: 2013P1011126

PATIENT
  Age: 50 Year
  Sex: Female

DRUGS (12)
  1. INFUMORPH [Suspect]
     Indication: PAIN
     Route: 037
  2. INFUMORPH [Suspect]
     Indication: POST LAMINECTOMY SYNDROME
     Route: 037
  3. INFUMORPH [Suspect]
     Route: 037
  4. ZOFRAN (ONDANSETRON) [Concomitant]
  5. NUCYNTA ER (TAPENTADOL) [Concomitant]
  6. XYREM (SODIUM OXYBATE) 500MG/ML SOLN [Concomitant]
  7. IBUPROFEN [Concomitant]
  8. TYLENOL (ACETAMINOPHEN) [Concomitant]
  9. METHYLPHENIDATE SR [Concomitant]
  10. RITALIN (METHYLPHENIDATE) [Concomitant]
  11. MAXALT (RIZATRIPTAN) [Concomitant]
  12. NORCO (HYDROCODONE-ACETAMINOPHEN) [Concomitant]

REACTIONS (5)
  - Influenza like illness [None]
  - Underdose [None]
  - Pruritus [None]
  - Pyrexia [None]
  - Drug withdrawal syndrome [None]
